FAERS Safety Report 20047655 (Version 2)
Quarter: 2021Q4

REPORT INFORMATION
  Report Type: Spontaneous
  Country: US (occurrence: US)
  Receive Date: 20211109
  Receipt Date: 20211122
  Transmission Date: 20220303
  Serious: No
  Sender: FDA-Public Use
  Company Number: US-TEVA-2021-US-1973620

PATIENT
  Sex: Male

DRUGS (1)
  1. TESTOSTERONE CYPIONATE [Suspect]
     Active Substance: TESTOSTERONE CYPIONATE
     Indication: Blood testosterone decreased
     Dosage: 8.5714 MILLIGRAM DAILY; STRENGTH: 200 MG / ML, - 0.3 ML DOSE THROUGH INJECTION
     Route: 065
     Dates: start: 202104

REACTIONS (1)
  - Therapeutic product effect decreased [Unknown]
